FAERS Safety Report 6240649-7 (Version None)
Quarter: 2009Q2

REPORT INFORMATION
  Report Type: 
  Country: None (occurrence: None)
  Receive Date: 20090623
  Receipt Date: 20081126
  Transmission Date: 20091009
  Serious: No
  Sender: FDA-Public Use
  Company Number: US-ASTRAZENECA-2008UW26518

PATIENT
  Age: 88 Year
  Sex: Male

DRUGS (6)
  1. PULMICORT RESPULES [Suspect]
     Indication: LUNG DISORDER
     Dosage: 0.5 MG/2 ML TWICE A DAY
     Route: 055
  2. PULMICORT RESPULES [Suspect]
     Indication: PLEURAL NEOPLASM
     Dosage: 0.5 MG/2 ML TWICE A DAY
     Route: 055
  3. PULMICORT RESPULES [Suspect]
     Indication: DYSPNOEA
     Dosage: 0.5 MG/2 ML TWICE A DAY
     Route: 055
  4. IPRATROPIUM BROMIDE [Concomitant]
  5. ALBUTEROL SULFATE [Concomitant]
  6. OXYGEN [Concomitant]

REACTIONS (2)
  - INSOMNIA [None]
  - WHEEZING [None]
